FAERS Safety Report 14240160 (Version 1)
Quarter: 2017Q4

REPORT INFORMATION
  Report Type: Spontaneous
  Country: BR (occurrence: BR)
  Receive Date: 20171130
  Receipt Date: 20171130
  Transmission Date: 20180321
  Serious: Yes (Hospitalization, Other)
  Sender: FDA-Public Use
  Company Number: BR-BAYER-2017-217636

PATIENT
  Age: 45 Year
  Sex: Female

DRUGS (2)
  1. MIRENA [Suspect]
     Active Substance: LEVONORGESTREL
     Indication: UTERINE LEIOMYOMA
  2. MIRENA [Suspect]
     Active Substance: LEVONORGESTREL
     Indication: UTERINE LEIOMYOMA
     Dosage: 20 MCG/24HR, CONT
     Route: 015
     Dates: start: 20170317, end: 20171103

REACTIONS (13)
  - Hypertension [None]
  - Menorrhagia [Not Recovered/Not Resolved]
  - Device use issue [None]
  - Haemorrhagic anaemia [Not Recovered/Not Resolved]
  - Syncope [None]
  - Haemoglobin decreased [Not Recovered/Not Resolved]
  - Pelvic pain [None]
  - Haematocrit decreased [Not Recovered/Not Resolved]
  - Menorrhagia [Recovered/Resolved]
  - Back pain [None]
  - Uterine leiomyoma [Not Recovered/Not Resolved]
  - Device expulsion [None]
  - Off label use of device [None]

NARRATIVE: CASE EVENT DATE: 2017
